FAERS Safety Report 13742047 (Version 1)
Quarter: 2017Q3

REPORT INFORMATION
  Report Type: Spontaneous
  Country: FR (occurrence: FR)
  Receive Date: 20170711
  Receipt Date: 20170711
  Transmission Date: 20171127
  Serious: Yes (Other)
  Sender: FDA-Public Use
  Company Number: PHHY2010FR65301

PATIENT
  Age: 63 Year
  Sex: Female

DRUGS (9)
  1. BACICOLINE [Concomitant]
     Dosage: UNK
     Dates: start: 20100524
  2. TOBRADEX [Concomitant]
     Active Substance: DEXAMETHASONE\TOBRAMYCIN
     Dosage: UNK
     Dates: start: 20100521, end: 20100523
  3. CARBOMER [Concomitant]
     Active Substance: CARBOMER
     Dosage: UNK
  4. XALATAN [Concomitant]
     Active Substance: LATANOPROST
     Dosage: UNK
     Dates: start: 20100805
  5. PILOCARPINE ^CHAUVIN^ [Concomitant]
  6. CARTEOLOL [Suspect]
     Active Substance: CARTEOLOL
     Dosage: 1 GTT, DAILY
     Route: 047
     Dates: end: 20100805
  7. CARTEOLOL [Suspect]
     Active Substance: CARTEOLOL
     Indication: GLAUCOMA
     Dosage: 1 GTT, DAILY
     Route: 047
     Dates: start: 20100531, end: 201007
  8. VISMED [Concomitant]
     Active Substance: HYALURONATE SODIUM
     Dosage: UNK
  9. STER-DEX [Concomitant]
     Active Substance: DEXAMETHASONE\OXYTETRACYCLINE
     Dosage: UNK
     Dates: start: 20100524

REACTIONS (7)
  - Alopecia [Recovering/Resolving]
  - Eye laser surgery [Unknown]
  - Iris hyperpigmentation [Unknown]
  - Ocular hyperaemia [Unknown]
  - Fatigue [Recovering/Resolving]
  - Hypotension [Recovering/Resolving]
  - Stress [Unknown]

NARRATIVE: CASE EVENT DATE: 201006
